FAERS Safety Report 10170574 (Version 2)
Quarter: 2014Q2

REPORT INFORMATION
  Report Type: Report from Study
  Country: US (occurrence: US)
  Receive Date: 20140513
  Receipt Date: 20140607
  Transmission Date: 20141212
  Serious: Yes (Other)
  Sender: FDA-Public Use
  Company Number: PHEH2014US009517

PATIENT
  Sex: Female
  Weight: 113.38 kg

DRUGS (1)
  1. GILENYA [Suspect]
     Indication: MULTIPLE SCLEROSIS
     Dosage: 0.5 MG, QD
     Dates: start: 201108

REACTIONS (21)
  - Amnesia [Unknown]
  - Cervical spinal stenosis [Unknown]
  - Fall [Unknown]
  - Multiple sclerosis relapse [Unknown]
  - Somnolence [Unknown]
  - Restless legs syndrome [Unknown]
  - Cognitive disorder [Unknown]
  - Depressed mood [Unknown]
  - Balance disorder [Unknown]
  - Fatigue [Unknown]
  - Disturbance in attention [Unknown]
  - Aphasia [Unknown]
  - Limb discomfort [Unknown]
  - Urinary incontinence [Not Recovered/Not Resolved]
  - Faecal incontinence [Not Recovered/Not Resolved]
  - Anxiety [Unknown]
  - Muscle spasms [Unknown]
  - Hemiparesis [Unknown]
  - Pain [Unknown]
  - Motor dysfunction [Unknown]
  - Hypoaesthesia [Unknown]
